FAERS Safety Report 22038458 (Version 2)
Quarter: 2023Q1

REPORT INFORMATION
  Report Type: Spontaneous
  Country: JP (occurrence: JP)
  Receive Date: 20230227
  Receipt Date: 20230301
  Transmission Date: 20230417
  Serious: Yes (Death, Life-Threatening, Hospitalization, Other)
  Sender: FDA-Public Use
  Company Number: None

PATIENT
  Age: 56 Year
  Sex: Female

DRUGS (17)
  1. DEXAMETHASONE [Suspect]
     Active Substance: DEXAMETHASONE
     Indication: Nodular lymphocyte predominant Hodgkin lymphoma
     Dosage: UNK, CYCLICAL,TWO CYCLES OF GDP REGIMEN
     Route: 065
  2. ETOPOSIDE [Suspect]
     Active Substance: ETOPOSIDE
     Indication: Bone marrow conditioning regimen
     Dosage: UNK,CONDITIONING REGIMEN
     Route: 065
  3. PREDNISOLONE [Suspect]
     Active Substance: PREDNISOLONE
     Indication: Febrile neutropenia
     Dosage: 40 MILLIGRAM/DAY, ON DAY 3 POSTADMISSION
     Route: 065
  4. PREDNISOLONE [Suspect]
     Active Substance: PREDNISOLONE
     Indication: Pneumocystis jirovecii pneumonia
     Dosage: 20 MILLIGRAM/DAY
     Route: 065
  5. PREDNISOLONE [Suspect]
     Active Substance: PREDNISOLONE
     Dosage: UNK,INCREASED
     Route: 065
  6. CISPLATIN [Suspect]
     Active Substance: CISPLATIN
     Indication: Nodular lymphocyte predominant Hodgkin lymphoma
     Dosage: UNK, CYCLICAL, TWO CYCLES OF GDP REGIMEN
     Route: 065
  7. ADRIAMYCIN [Suspect]
     Active Substance: DOXORUBICIN HYDROCHLORIDE
     Indication: Nodular lymphocyte predominant Hodgkin lymphoma
     Dosage: UNK, CYCLICAL,FOUR CYCLES OF ABVD REGIMEN
     Route: 065
  8. BLEOMYCIN [Suspect]
     Active Substance: BLEOMYCIN SULFATE
     Indication: Nodular lymphocyte predominant Hodgkin lymphoma
     Dosage: UNK, CYCLICAL,FOUR CYCLES OF ABVD REGIMEN
     Route: 065
  9. VINBLASTINE [Suspect]
     Active Substance: VINBLASTINE
     Indication: Nodular lymphocyte predominant Hodgkin lymphoma
     Dosage: UNK, CYCLICAL,FOUR CYCLES OF ABVD REGIMEN
     Route: 065
  10. DACARBAZINE [Suspect]
     Active Substance: DACARBAZINE
     Indication: Nodular lymphocyte predominant Hodgkin lymphoma
     Dosage: UNK, CYCLICAL,FOUR CYCLES OF ABVD REGIMEN
     Route: 065
  11. BRENTUXIMAB VEDOTIN [Suspect]
     Active Substance: BRENTUXIMAB VEDOTIN
     Indication: Nodular lymphocyte predominant Hodgkin lymphoma
     Dosage: UNK, CYCLICAL, FIVE CYCLES OF BV
     Route: 065
  12. GEMCITABINE [Suspect]
     Active Substance: GEMCITABINE
     Indication: Nodular lymphocyte predominant Hodgkin lymphoma
     Dosage: UNK, CYCLICAL, TWO CYCLES OF GDP REGIMEN
     Route: 065
  13. RANIMUSTINE [Suspect]
     Active Substance: RANIMUSTINE
     Indication: Bone marrow conditioning regimen
     Dosage: UNK,CONDITIONING REGIMEN
     Route: 065
  14. CYTARABINE [Suspect]
     Active Substance: CYTARABINE
     Indication: Bone marrow conditioning regimen
     Dosage: UNK,CONDITIONING REGIMEN
     Route: 065
  15. MELPHALAN [Suspect]
     Active Substance: MELPHALAN
     Indication: Bone marrow conditioning regimen
     Dosage: UNK,CONDITIONING REGIMEN
     Route: 065
  16. CEFEPIME [Concomitant]
     Active Substance: CEFEPIME HYDROCHLORIDE
     Indication: Febrile neutropenia
     Dosage: UNK
     Route: 065
  17. FILGRASTIM [Concomitant]
     Active Substance: FILGRASTIM
     Indication: Febrile neutropenia
     Dosage: UNK
     Route: 065

REACTIONS (4)
  - Gastroenteritis bacterial [Fatal]
  - Pneumocystis jirovecii pneumonia [Fatal]
  - Drug ineffective [Fatal]
  - Therapy partial responder [Unknown]
